FAERS Safety Report 6136551-1 (Version None)
Quarter: 2009Q1

REPORT INFORMATION
  Report Type: 
  Country: None (occurrence: None)
  Receive Date: 20090330
  Receipt Date: 20090327
  Transmission Date: 20090719
  Serious: Yes (Hospitalization, Other)
  Sender: FDA-Public Use
  Company Number: US-PFIZER INC-2009167946

PATIENT
  Age: 55 Year
  Sex: Female

DRUGS (2)
  1. ARGATROBAN [Suspect]
     Indication: DEEP VEIN THROMBOSIS
     Dosage: UNK
     Route: 042
     Dates: start: 20090205
  2. CUMADIN [Concomitant]
     Dosage: UNK

REACTIONS (1)
  - DRUG RESISTANCE [None]
